FAERS Safety Report 9057898 (Version 1)
Quarter: 2013Q1

REPORT INFORMATION
  Report Type: Spontaneous
  Country: US (occurrence: None)
  Receive Date: 20130204
  Receipt Date: 20130204
  Transmission Date: 20140127
  Serious: Yes (Disabling)
  Sender: FDA-Public Use
  Company Number: None

PATIENT
  Age: 63 Year
  Sex: Female
  Weight: 72.58 kg

DRUGS (2)
  1. JANUVIA [Suspect]
     Indication: DIABETES MELLITUS
     Dosage: ONCE A DAY
     Dates: start: 20130105, end: 20130127
  2. JANUVIA [Concomitant]

REACTIONS (8)
  - Oropharyngeal pain [None]
  - Hyperventilation [None]
  - Dyspnoea [None]
  - Nasal congestion [None]
  - Sleep disorder [None]
  - Panic attack [None]
  - Rhinorrhoea [None]
  - Product substitution issue [None]
